FAERS Safety Report 23763364 (Version 2)
Quarter: 2024Q3

REPORT INFORMATION
  Report Type: Spontaneous
  Country: US (occurrence: None)
  Receive Date: 20240419
  Receipt Date: 20240909
  Transmission Date: 20241017
  Serious: Yes (Death, Life-Threatening, Hospitalization, Other)
  Sender: ASTRAZENECA
  Company Number: 2024A093534

PATIENT
  Age: 79 Year
  Sex: Male
  Weight: 87 kg

DRUGS (24)
  1. OMEPRAZOLE [Suspect]
     Active Substance: OMEPRAZOLE
     Route: 048
     Dates: start: 20231121
  2. VUDALIMAB [Suspect]
     Active Substance: VUDALIMAB
     Indication: Adenocarcinoma metastatic
     Route: 042
     Dates: start: 20231107, end: 20240307
  3. CABAZITAXEL [Suspect]
     Active Substance: CABAZITAXEL
     Indication: Adenocarcinoma metastatic
     Route: 042
     Dates: start: 20231107, end: 20240307
  4. CARBOPLATIN [Suspect]
     Active Substance: CARBOPLATIN
     Indication: Adenocarcinoma metastatic
     Route: 042
     Dates: start: 20231107, end: 20240307
  5. LEUPROLIDE [Concomitant]
     Active Substance: LEUPROLIDE
     Dates: start: 20191004
  6. DENOSUMAB [Concomitant]
     Active Substance: DENOSUMAB
  7. LISINOPRIL [Concomitant]
     Active Substance: LISINOPRIL
  8. HYDROCHLOROTHIAZIDE [Concomitant]
     Active Substance: HYDROCHLOROTHIAZIDE
  9. ASPIRIN [Concomitant]
     Active Substance: ASPIRIN
     Dates: start: 20231021
  10. CYCLOBENZAPRINE [Concomitant]
     Active Substance: CYCLOBENZAPRINE
  11. TYLENOL [Concomitant]
     Active Substance: ACETAMINOPHEN
     Dates: start: 20231113, end: 20231121
  12. PREDNISONE [Concomitant]
     Active Substance: PREDNISONE
     Dates: start: 20211118
  13. ZOFRAN [Concomitant]
     Active Substance: ONDANSETRON HYDROCHLORIDE
     Dates: start: 20200206
  14. PROCHLORPERAZINE [Concomitant]
     Active Substance: PROCHLORPERAZINE
     Dates: start: 20191112
  15. TAMSULOSIN [Concomitant]
     Active Substance: TAMSULOSIN
     Dates: start: 20210309
  16. CONTAC COLD/FLU [Concomitant]
     Dates: start: 20231118, end: 20231118
  17. VICKS NYQUIL [Concomitant]
     Active Substance: ACETAMINOPHEN\DEXTROMETHORPHAN HYDROBROMIDE\DOXYLAMINE SUCCINATE
     Dates: start: 20231118, end: 20231118
  18. CALCIUM CARBONATE [Concomitant]
     Active Substance: CALCIUM CARBONATE
     Dates: start: 20190919
  19. VITAMIN D3 [Concomitant]
     Active Substance: CHOLECALCIFEROL
     Dates: start: 20210126
  20. DEXAMETHASONE [Concomitant]
     Active Substance: DEXAMETHASONE
     Dates: start: 20231107, end: 20231107
  21. PALONOSETRON [Concomitant]
     Active Substance: PALONOSETRON
     Dates: start: 20231107, end: 20231107
  22. NEULASTA [Concomitant]
     Active Substance: PEGFILGRASTIM
     Dates: start: 20231107, end: 20231107
  23. BIOTENE DRY MOUTH [Concomitant]
     Dates: start: 20231116
  24. XYLITOL [Concomitant]
     Active Substance: XYLITOL
     Dates: start: 20231116

REACTIONS (5)
  - Myocardial infarction [Recovered/Resolved]
  - Malignant neoplasm progression [Fatal]
  - Aspartate aminotransferase increased [Recovered/Resolved]
  - Alanine aminotransferase increased [Recovered/Resolved]
  - Dizziness [Unknown]

NARRATIVE: CASE EVENT DATE: 20231121
